FAERS Safety Report 6720064-X (Version None)
Quarter: 2010Q2

REPORT INFORMATION
  Report Type: 
  Country: None (occurrence: None)
  Receive Date: 20100511
  Receipt Date: 20100302
  Transmission Date: 20101027
  Serious: Yes (Other)
  Sender: FDA-Public Use
  Company Number: US-BAYER-200943536NA

PATIENT
  Age: 45 Year
  Sex: Female
  Weight: 108 kg

DRUGS (8)
  1. ULTRAVIST 150 [Suspect]
     Indication: COMPUTERISED TOMOGRAM ABDOMEN
     Dosage: TOTAL DAILY DOSE: 125 ML  UNIT DOSE: 500 ML
     Route: 042
     Dates: start: 20091222, end: 20091222
  2. UNKNOWN CONTRAST [Concomitant]
     Route: 048
  3. TRILYTE [Concomitant]
     Route: 048
  4. ALBUTEROL SULFATE [Concomitant]
     Dosage: 2.5 MG.3 ML; 2 AMPULES BY INHALATION ^ONCE^ VIA NEBULIZER
     Route: 055
  5. FLOVENT [Concomitant]
     Dosage: TOTAL DAILY DOSE: 4 PUFF
     Route: 055
  6. SINGULAIR [Concomitant]
     Dosage: TOTAL DAILY DOSE: 10 MG
     Route: 048
  7. ADVAIR DISKUS 100/50 [Concomitant]
     Dosage: TOTAL DAILY DOSE: 2 PUFF
     Route: 055
  8. PROAIR HFA [Concomitant]
     Dosage: TOTAL DAILY DOSE: 8 PUFF
     Route: 055

REACTIONS (10)
  - ABDOMINAL DISTENSION [None]
  - BLOOD PRESSURE DECREASED [None]
  - DIARRHOEA [None]
  - DISORIENTATION [None]
  - HEART RATE DECREASED [None]
  - HYPERHIDROSIS [None]
  - PRESYNCOPE [None]
  - SYNCOPE [None]
  - TONIC CLONIC MOVEMENTS [None]
  - URTICARIA [None]
